FAERS Safety Report 7496173-7 (Version None)
Quarter: 2011Q2

REPORT INFORMATION
  Report Type: 
  Country: None (occurrence: None)
  Receive Date: 20110523
  Receipt Date: 20110512
  Transmission Date: 20111010
  Serious: Yes (Hospitalization, Other)
  Sender: FDA-Public Use
  Company Number: PHFR2011GB02144

PATIENT
  Sex: Male

DRUGS (4)
  1. EPILIM CHRONO [Concomitant]
     Dosage: 1 G, UNK
     Route: 048
  2. OLANZAPINE [Concomitant]
     Dosage: 5 MG, UNK
     Route: 048
  3. CLOZARIL [Suspect]
     Dosage: 150 MG, BID
     Route: 048
  4. CLOZARIL [Suspect]
     Indication: SCHIZOPHRENIA
     Dosage: UNK MG, UNK
     Route: 048
     Dates: start: 20110311

REACTIONS (2)
  - MEAN CELL VOLUME ABNORMAL [None]
  - RED BLOOD CELL COUNT DECREASED [None]
